FAERS Safety Report 9331812 (Version 1)
Quarter: 2013Q2

REPORT INFORMATION
  Report Type: Spontaneous
  Country: US (occurrence: None)
  Receive Date: 20130603
  Receipt Date: 20130603
  Transmission Date: 20140414
  Serious: Yes (Other)
  Sender: FDA-Public Use
  Company Number: 2013P1006550

PATIENT
  Age: 66 Year
  Sex: Female

DRUGS (2)
  1. PLAQUENIL [Suspect]
     Dates: end: 2013
  2. REBIF [Suspect]
     Route: 058
     Dates: start: 20130416

REACTIONS (5)
  - Hot flush [None]
  - Influenza like illness [None]
  - Injection site reaction [None]
  - Optic nerve disorder [None]
  - Injection site pain [None]
